FAERS Safety Report 8552484-5 (Version None)
Quarter: 2012Q3

REPORT INFORMATION
  Report Type: 
  Country: None (occurrence: None)
  Receive Date: 20120731
  Receipt Date: 20120720
  Transmission Date: 20120928
  Serious: Yes (Hospitalization, Other)
  Sender: FDA-Public Use
  Company Number: US-BAYER-2012-022220

PATIENT
  Age: 28 Year
  Sex: Female
  Weight: 86.168 kg

DRUGS (11)
  1. GLUCOPHAGE [Concomitant]
     Dosage: 500 MG, TIW
     Route: 048
     Dates: start: 20080208
  2. BIAXIN XL [Concomitant]
     Dosage: 500 MG, 2 EVERY DAY
     Route: 048
     Dates: start: 20080208
  3. CIPROFLOXACIN HCL [Concomitant]
     Dosage: 500 MG, BID
  4. YASMIN [Suspect]
     Dosage: UNK
     Dates: start: 20070901
  5. VICODIN [Concomitant]
  6. ZEGERID [Concomitant]
     Dosage: UNK
  7. YAZ [Suspect]
     Dosage: UNK
     Dates: start: 20070909, end: 20080323
  8. ANTIBIOTICS [Concomitant]
  9. NEXIUM [Concomitant]
     Dosage: UNK
     Route: 048
     Dates: start: 20080208
  10. SYMBICORT [Concomitant]
     Dosage: 80/4.5, 2 TWICE A DAY
     Route: 045
     Dates: start: 20080208
  11. FLAGYL [Concomitant]
     Dosage: 500 MG, TID

REACTIONS (8)
  - FEAR OF DISEASE [None]
  - ABDOMINAL PAIN [None]
  - COLITIS ISCHAEMIC [None]
  - CHOLELITHIASIS [None]
  - INJURY [None]
  - PAIN [None]
  - CHEST PAIN [None]
  - RECTAL HAEMORRHAGE [None]
